FAERS Safety Report 4726036-9 (Version None)
Quarter: 2005Q3

REPORT INFORMATION
  Report Type: 
  Country: None (occurrence: None)
  Receive Date: 20050725
  Receipt Date: 20050713
  Transmission Date: 20060218
  Serious: Yes (Death, Hospitalization)
  Sender: FDA-Public Use
  Company Number: B0387473A

PATIENT
  Age: 60 Year
  Sex: Male

DRUGS (4)
  1. ZIAGEN [Suspect]
     Dates: start: 20031021
  2. TENOFOVIR (TENOFOVIR) [Suspect]
     Dosage: 300 MG /PER DAY/ ORAL
     Route: 048
     Dates: start: 20030515
  3. STAVUDINE [Concomitant]
  4. NEVIRAPINE [Concomitant]

REACTIONS (16)
  - ALANINE AMINOTRANSFERASE INCREASED [None]
  - ANAEMIA [None]
  - ASPARTATE AMINOTRANSFERASE INCREASED [None]
  - BLOOD AMYLASE INCREASED [None]
  - BLOOD CREATININE INCREASED [None]
  - BLOOD LACTATE DEHYDROGENASE INCREASED [None]
  - COMA [None]
  - DRUG INTERACTION [None]
  - DYSPNOEA [None]
  - HEART RATE DECREASED [None]
  - INTERNATIONAL NORMALISED RATIO INCREASED [None]
  - LACTIC ACIDOSIS [None]
  - MITOCHONDRIAL TOXICITY [None]
  - MULTI-ORGAN FAILURE [None]
  - OXYGEN SATURATION DECREASED [None]
  - PO2 INCREASED [None]
